FAERS Safety Report 9514632 (Version 1)
Quarter: 2013Q1

REPORT INFORMATION
  Report Type: Spontaneous
  Country: US (occurrence: None)
  Receive Date: 20130305
  Receipt Date: 20130305
  Transmission Date: 20140127
  Serious: Yes (Hospitalization)
  Sender: FDA-Public Use
  Company Number: 163-21880-12123037

PATIENT
  Age: 60 Year
  Sex: Male

DRUGS (7)
  1. REVLIMID (LENALIDOMIDE) [Suspect]
     Indication: PLASMA CELL MYELOMA
     Route: 048
     Dates: start: 20110909
  2. ASPIRIN (ACTYLSALICYLIC ACID) [Concomitant]
  3. FLEXERIL (CYCLOBENZAPRINE HYDROCHLORIDE) [Concomitant]
  4. KLONOPIN (CLONAZEPAM) (TABLETS) [Concomitant]
  5. OXYCONTIN (OXYCODONE HYDROCHLORIDE) [Concomitant]
  6. PERCOCET (OXYCOCET) [Concomitant]
  7. TOFRANIL (IMIPRAMINE HYDROCHLORIDE) [Concomitant]

REACTIONS (1)
  - Thrombosis [None]
